FAERS Safety Report 6189174-2 (Version None)
Quarter: 2009Q2

REPORT INFORMATION
  Report Type: 
  Country: None (occurrence: None)
  Receive Date: 20090513
  Receipt Date: 20090506
  Transmission Date: 20091009
  Serious: Yes (Other)
  Sender: FDA-Public Use
  Company Number: US-SANOFI-SYNTHELABO-A03200901967

PATIENT
  Sex: Female

DRUGS (1)
  1. PLAVIX [Suspect]
     Indication: THROMBOSIS
     Dosage: UNK
     Route: 048

REACTIONS (2)
  - DEEP VEIN THROMBOSIS [None]
  - PAIN IN EXTREMITY [None]
